FAERS Safety Report 7536681-3 (Version None)
Quarter: 2011Q2

REPORT INFORMATION
  Report Type: 
  Country: None (occurrence: None)
  Receive Date: 20110609
  Receipt Date: 20110601
  Transmission Date: 20111010
  Serious: Yes (Death, Hospitalization)
  Sender: FDA-Public Use
  Company Number: A0929876A

PATIENT
  Age: 86 Year
  Sex: Female

DRUGS (2)
  1. DYNACIRC CR [Suspect]
     Indication: HYPERTENSION
     Dosage: 10MG PER DAY
     Route: 048
  2. UNKNOWN [Concomitant]

REACTIONS (2)
  - CARDIAC FAILURE [None]
  - CARDIAC DISORDER [None]
